FAERS Safety Report 22197196 (Version 1)
Quarter: 2023Q2

REPORT INFORMATION
  Report Type: Report from Study
  Country: US (occurrence: US)
  Receive Date: 20230411
  Receipt Date: 20230411
  Transmission Date: 20230722
  Serious: Yes (Other)
  Sender: FDA-Public Use
  Company Number: US-ABBVIE-4718692

PATIENT
  Age: 67 Year
  Sex: Female

DRUGS (1)
  1. HUMIRA [Suspect]
     Active Substance: ADALIMUMAB
     Indication: Rheumatoid arthritis
     Route: 058
     Dates: start: 20190621

REACTIONS (4)
  - Mass [Recovered/Resolved]
  - Arthritis [Unknown]
  - Memory impairment [Unknown]
  - Eyelid thickening [Unknown]

NARRATIVE: CASE EVENT DATE: 20210404
